FAERS Safety Report 8423410-4 (Version None)
Quarter: 2012Q2

REPORT INFORMATION
  Report Type: 
  Country: None (occurrence: None)
  Receive Date: 20120608
  Receipt Date: 20120530
  Transmission Date: 20120825
  Serious: Yes (Other)
  Sender: FDA-Public Use
  Company Number: US-ASTRAZENECA-2012SE35558

PATIENT
  Sex: Male

DRUGS (2)
  1. UNSPECIFIED [Concomitant]
  2. CRESTOR [Suspect]
     Route: 048

REACTIONS (1)
  - PERICARDIAL HAEMORRHAGE [None]
